FAERS Safety Report 7099047-9 (Version None)
Quarter: 2010Q4

REPORT INFORMATION
  Report Type: 
  Country: None (occurrence: None)
  Receive Date: 20101112
  Receipt Date: 20101101
  Transmission Date: 20110411
  Serious: Yes (Other)
  Sender: FDA-Public Use
  Company Number: PHHY2010US73888

PATIENT
  Sex: Male

DRUGS (1)
  1. EXJADE [Suspect]
     Indication: ANAEMIA
     Dosage: 500 MG, UNK
     Route: 048

REACTIONS (2)
  - BONE MARROW TRANSPLANT [None]
  - POST PROCEDURAL COMPLICATION [None]
